FAERS Safety Report 22147518 (Version 1)
Quarter: 2023Q1

REPORT INFORMATION
  Report Type: Spontaneous
  Country: AU (occurrence: AU)
  Receive Date: 20230328
  Receipt Date: 20230328
  Transmission Date: 20230417
  Serious: Yes (Other)
  Sender: FDA-Public Use
  Company Number: AU-SA-2016SA221836

PATIENT
  Age: 36 Year
  Sex: Female

DRUGS (2)
  1. CAMPATH [Suspect]
     Active Substance: ALEMTUZUMAB
     Indication: Multiple sclerosis
     Dosage: 12 MG,QD
     Route: 042
     Dates: start: 2008, end: 2008
  2. CAMPATH [Suspect]
     Active Substance: ALEMTUZUMAB
     Dosage: 12 MG,QD
     Route: 042
     Dates: start: 2009, end: 2009

REACTIONS (10)
  - Endocrine ophthalmopathy [Recovering/Resolving]
  - Photophobia [Recovering/Resolving]
  - Exophthalmos [Recovering/Resolving]
  - Eyelid retraction [Recovering/Resolving]
  - Lid lag [Recovering/Resolving]
  - Extraocular muscle disorder [Recovering/Resolving]
  - Optic neuritis [Recovering/Resolving]
  - Eyelid oedema [Recovering/Resolving]
  - Lagophthalmos [Recovering/Resolving]
  - Goitre [Unknown]

NARRATIVE: CASE EVENT DATE: 20100101
